FAERS Safety Report 9100263 (Version 1)
Quarter: 2013Q1

REPORT INFORMATION
  Report Type: Spontaneous
  Country: FR (occurrence: FR)
  Receive Date: 20130214
  Receipt Date: 20130214
  Transmission Date: 20140127
  Serious: Yes (Hospitalization)
  Sender: FDA-Public Use
  Company Number: FR-PFIZER INC-2013052103

PATIENT
  Age: 75 Year
  Sex: Male

DRUGS (4)
  1. SOLU-MEDROL [Suspect]
     Indication: PREMEDICATION
     Dosage: 40 MG, UNK
     Route: 042
     Dates: start: 20130104
  2. REMICADE [Suspect]
     Dosage: 500 MG, UNK
     Route: 042
     Dates: start: 20130104, end: 20130104
  3. POLARAMINE [Suspect]
     Indication: PREMEDICATION
     Dosage: 5 MG/ML, UNK
     Route: 042
     Dates: start: 20130104
  4. KAYEXALATE [Concomitant]
     Dosage: 1 DF
     Route: 048

REACTIONS (5)
  - Hypersensitivity [Recovered/Resolved]
  - Hypovolaemic shock [Recovered/Resolved]
  - Erythema [Recovered/Resolved]
  - Chills [Recovered/Resolved]
  - Hyperthermia [Recovered/Resolved]
